FAERS Safety Report 14171648 (Version 2)
Quarter: 2017Q4

REPORT INFORMATION
  Report Type: Spontaneous
  Country: CZ (occurrence: CZ)
  Receive Date: 20171108
  Receipt Date: 20171224
  Transmission Date: 20180321
  Serious: Yes (Hospitalization, Other)
  Sender: FDA-Public Use
  Company Number: PHHY2017CZ159669

PATIENT
  Age: 71 Year
  Sex: Female

DRUGS (3)
  1. VOTRIENT [Suspect]
     Active Substance: PAZOPANIB HYDROCHLORIDE
     Indication: METASTATIC RENAL CELL CARCINOMA
     Dosage: 600 MG, UNK
     Route: 065
     Dates: start: 201508
  2. VOTRIENT [Suspect]
     Active Substance: PAZOPANIB HYDROCHLORIDE
     Dosage: 600 MG, UNK
     Route: 065
     Dates: start: 201511, end: 201610
  3. VOTRIENT [Suspect]
     Active Substance: PAZOPANIB HYDROCHLORIDE
     Dosage: 800 MG, UNK
     Route: 065
     Dates: start: 201508

REACTIONS (14)
  - Vomiting [Not Recovered/Not Resolved]
  - Fatigue [Unknown]
  - Dehydration [Unknown]
  - Memory impairment [Unknown]
  - Malaise [Unknown]
  - Blood potassium increased [Unknown]
  - Dysgeusia [Unknown]
  - Pain in extremity [Unknown]
  - Diarrhoea [Unknown]
  - Metastases to central nervous system [Unknown]
  - Asthenia [Recovered/Resolved]
  - Anxiety [Recovered/Resolved]
  - Blood creatine increased [Unknown]
  - Haemoglobin decreased [Unknown]

NARRATIVE: CASE EVENT DATE: 201511
